FAERS Safety Report 5123811-6 (Version None)
Quarter: 2006Q3

REPORT INFORMATION
  Report Type: 
  Country: None (occurrence: None)
  Receive Date: 20060802
  Receipt Date: 20060523
  Transmission Date: 20061208
  Serious: Yes (Other)
  Sender: FDA-Public Use
  Company Number: 2006-05-1916

PATIENT
  Age: 48 Year
  Sex: Male
  Weight: 71.6683 kg

DRUGS (2)
  1. REBETOL [Suspect]
     Dosage: 1000  MG ORAL
     Route: 048
     Dates: start: 20060126
  2. PEGASYS [Suspect]
     Dosage: 180 MCG QWK
     Dates: start: 20060126

REACTIONS (7)
  - ABDOMINAL PAIN UPPER [None]
  - CHILLS [None]
  - FATIGUE [None]
  - HEADACHE [None]
  - MOOD ALTERED [None]
  - WEIGHT DECREASED [None]
  - WHITE BLOOD CELL COUNT DECREASED [None]
